FAERS Safety Report 14384925 (Version 1)
Quarter: 2018Q1

REPORT INFORMATION
  Report Type: Spontaneous
  Country: AR (occurrence: AR)
  Receive Date: 20180115
  Receipt Date: 20180115
  Transmission Date: 20180509
  Serious: Yes (Other)
  Sender: FDA-Public Use
  Company Number: AR-MYLANLABS-2018M1000755

PATIENT
  Age: 49 Year
  Sex: Female

DRUGS (2)
  1. ACETAZOLAMIDE. [Suspect]
     Active Substance: ACETAZOLAMIDE
     Dosage: TWO TABLETS OF 250MG, 2 DAYS PRIOR PRESENTATION
     Route: 048
  2. ACETAZOLAMIDE. [Suspect]
     Active Substance: ACETAZOLAMIDE
     Indication: HYPOBARISM
     Dosage: FOUR TABLETS OF 250 MG, 3 WEEKS PRIOR PRESENTATION
     Route: 048

REACTIONS (4)
  - Off label use [Recovering/Resolving]
  - Angle closure glaucoma [Recovering/Resolving]
  - Gastrointestinal tract irritation [Unknown]
  - Acute myopia [Recovering/Resolving]
